FAERS Safety Report 9772243 (Version 4)
Quarter: 2014Q2

REPORT INFORMATION
  Report Type: Report from Study
  Country: CO (occurrence: CO)
  Receive Date: 20131219
  Receipt Date: 20140421
  Transmission Date: 20141212
  Serious: Yes (Hospitalization)
  Sender: FDA-Public Use
  Company Number: CO-ROCHE-1318125

PATIENT
  Age: 55 Year
  Sex: Female
  Weight: 48 kg

DRUGS (35)
  1. RITUXIMAB [Suspect]
     Indication: B-CELL LYMPHOMA
     Route: 042
  2. RHUPH20/RITUXIMAB [Suspect]
     Indication: B-CELL LYMPHOMA
     Dosage: MOST RECENT DOSE PRIOR TO SAE 29/OCT/2013
     Route: 058
     Dates: start: 20130405
  3. VINCRISTINE [Concomitant]
     Route: 065
     Dates: start: 20130405, end: 20130902
  4. ACETAMINOPHEN [Concomitant]
     Route: 065
     Dates: start: 20130405, end: 20130405
  5. ACETAMINOPHEN [Concomitant]
     Route: 065
     Dates: start: 20130426, end: 20130426
  6. ACETAMINOPHEN [Concomitant]
     Route: 065
     Dates: start: 20130517, end: 20130517
  7. ACETAMINOPHEN [Concomitant]
     Route: 065
     Dates: start: 20130607, end: 20130607
  8. ACETAMINOPHEN [Concomitant]
     Route: 065
     Dates: start: 20130628, end: 20130628
  9. ACETAMINOPHEN [Concomitant]
     Route: 065
     Dates: start: 20130719, end: 20130719
  10. ACETAMINOPHEN [Concomitant]
     Route: 065
     Dates: start: 20130503, end: 20130506
  11. ACETAMINOPHEN [Concomitant]
     Route: 065
     Dates: start: 20130812, end: 20130812
  12. ACETAMINOPHEN [Concomitant]
     Route: 065
     Dates: start: 20130902, end: 20130902
  13. ACETAMINOPHEN [Concomitant]
     Route: 065
     Dates: start: 20131029, end: 20131029
  14. HYDROCORTISONE [Concomitant]
     Route: 065
     Dates: start: 20130405, end: 20130405
  15. HYDROCORTISONE [Concomitant]
     Route: 065
     Dates: start: 20130426, end: 20130426
  16. HYDROCORTISONE [Concomitant]
     Route: 065
     Dates: start: 20130517, end: 20130517
  17. HYDROCORTISONE [Concomitant]
     Route: 065
     Dates: start: 20130607, end: 20130607
  18. HYDROCORTISONE [Concomitant]
     Route: 065
     Dates: start: 20130628, end: 20130628
  19. HYDROCORTISONE [Concomitant]
     Route: 065
     Dates: start: 20130719, end: 20130719
  20. HYDROCORTISONE [Concomitant]
     Route: 065
     Dates: start: 20130812, end: 20130812
  21. HYDROCORTISONE [Concomitant]
     Route: 065
     Dates: start: 20130902, end: 20130902
  22. LORAZEPAM [Concomitant]
     Route: 065
     Dates: start: 20130405, end: 20130405
  23. LORAZEPAM [Concomitant]
     Route: 065
     Dates: start: 20130426, end: 20130426
  24. LORAZEPAM [Concomitant]
     Route: 065
     Dates: start: 20130607, end: 20130607
  25. LORAZEPAM [Concomitant]
     Route: 065
     Dates: start: 20130517, end: 20130517
  26. ONDANSETRON [Concomitant]
     Route: 065
     Dates: start: 20130405, end: 20130405
  27. ONDANSETRON [Concomitant]
     Route: 065
     Dates: start: 20130426, end: 20130426
  28. ONDANSETRON [Concomitant]
     Route: 065
     Dates: start: 20130517, end: 20130517
  29. ONDANSETRON [Concomitant]
     Route: 065
     Dates: start: 20130607, end: 20130607
  30. ONDANSETRON [Concomitant]
     Route: 065
     Dates: start: 20130628, end: 20130628
  31. ONDANSETRON [Concomitant]
     Route: 065
     Dates: start: 20130719, end: 20130719
  32. ONDANSETRON [Concomitant]
     Route: 065
     Dates: start: 20130812, end: 20130812
  33. ONDANSETRON [Concomitant]
     Route: 065
     Dates: start: 20130902, end: 20130902
  34. CYCLOPHOSPHAMIDE [Concomitant]
     Route: 065
     Dates: start: 20130405, end: 20130902
  35. PREDNISONE [Concomitant]
     Route: 065
     Dates: start: 20130405, end: 20130902

REACTIONS (1)
  - Peau d^orange [Recovered/Resolved]
